FAERS Safety Report 7079109-2 (Version None)
Quarter: 2010Q4

REPORT INFORMATION
  Report Type: 
  Country: None (occurrence: None)
  Receive Date: 20101102
  Receipt Date: 20101027
  Transmission Date: 20110411
  Serious: Yes (Hospitalization)
  Sender: FDA-Public Use
  Company Number: A0788269A

PATIENT
  Age: 70 Year
  Sex: Male

DRUGS (8)
  1. AVANDIA [Suspect]
     Route: 048
     Dates: start: 20060301, end: 20070301
  2. ALTACE [Concomitant]
  3. AMARYL [Concomitant]
  4. CRESTOR [Concomitant]
  5. JANUVIA [Concomitant]
  6. HYDROCHLOROTHIAZIDE [Concomitant]
  7. ASPIRIN [Concomitant]
  8. METOPROLOL [Concomitant]

REACTIONS (2)
  - ANGINA UNSTABLE [None]
  - CARDIAC FAILURE CONGESTIVE [None]
